FAERS Safety Report 4442021-9 (Version None)
Quarter: 2004Q3

REPORT INFORMATION
  Report Type: 
  Country: None (occurrence: None)
  Receive Date: 20040901
  Receipt Date: 20040820
  Transmission Date: 20050211
  Serious: Yes (Hospitalization)
  Sender: FDA-Public Use
  Company Number: 24921

PATIENT
  Age: 71 Year
  Sex: Male

DRUGS (4)
  1. NITROGLYCERIN [Suspect]
     Dosage: 15 MG (15 MG, 1 TRANSDERMAL)
     Route: 062
  2. IRESSA [Suspect]
     Dosage: 250 MG (250 MG, 1 IN 1 DAY(S) ORAL
     Route: 048
     Dates: start: 20040624, end: 20040716
  3. CORDARONE [Suspect]
     Dosage: 200 MG (200 MG, 5 DAYS A WEEK) ORAL
     Route: 048
  4. AMLOR (AMLODIPINE BESILATE) [Suspect]
     Dosage: 5 MG (5 MG, 1 IN 1 DAY(S)) ORAL
     Route: 048

REACTIONS (2)
  - DERMATITIS ACNEIFORM [None]
  - HAEMOPTYSIS [None]
